FAERS Safety Report 6364697-1 (Version None)
Quarter: 2009Q3

REPORT INFORMATION
  Report Type: 
  Country: None (occurrence: None)
  Receive Date: 20090919
  Receipt Date: 20090727
  Transmission Date: 20100115
  Serious: No
  Sender: FDA-Public Use
  Company Number: US-ABBOTT-09P-163-0588012-00

PATIENT
  Sex: Female
  Weight: 90.8 kg

DRUGS (4)
  1. HUMIRA [Suspect]
     Indication: PSORIATIC ARTHROPATHY
     Dates: start: 20090717
  2. METHOTREXATE SODIUM [Concomitant]
     Indication: DRUG USE FOR UNKNOWN INDICATION
     Dosage: SIX TO SEVEN PILLS, WEEKLY
  3. METHOTREXATE SODIUM [Concomitant]
     Dosage: FOUR PILLS, WEEKLY
  4. PROTONIX [Concomitant]
     Indication: ABDOMINAL DISCOMFORT

REACTIONS (2)
  - ABDOMINAL DISCOMFORT [None]
  - MYALGIA [None]
